FAERS Safety Report 5334306-9 (Version None)
Quarter: 2007Q2

REPORT INFORMATION
  Report Type: 
  Country: None (occurrence: None)
  Receive Date: 20070525
  Receipt Date: 20070521
  Transmission Date: 20071010
  Serious: Yes (Life-Threatening, Hospitalization, Other)
  Sender: FDA-Public Use
  Company Number: PHBS2007EG08345

PATIENT
  Age: 38 Year
  Sex: Male
  Weight: 80 kg

DRUGS (1)
  1. ZELMAC [Suspect]
     Indication: IRRITABLE BOWEL SYNDROME
     Dosage: 6 MG/DAY
     Route: 048
     Dates: start: 20060101, end: 20070101

REACTIONS (7)
  - ATRIAL FIBRILLATION [None]
  - CHEST PAIN [None]
  - DYSPNOEA [None]
  - EJECTION FRACTION DECREASED [None]
  - MYOCARDITIS [None]
  - PALPITATIONS [None]
  - TACHYCARDIA [None]
